FAERS Safety Report 5644780-6 (Version None)
Quarter: 2008Q1

REPORT INFORMATION
  Report Type: 
  Country: None (occurrence: None)
  Receive Date: 20080229
  Receipt Date: 20070730
  Transmission Date: 20080703
  Serious: No
  Sender: FDA-Public Use
  Company Number: A0666911A

PATIENT
  Age: 56 Year
  Sex: Female

DRUGS (2)
  1. VALTREX [Suspect]
     Indication: GENITAL HERPES
     Dosage: 1000MG TWICE PER DAY
     Route: 048
     Dates: start: 20070720, end: 20070729
  2. VIBRAMYCIN [Concomitant]

REACTIONS (2)
  - LOWER RESPIRATORY TRACT INFECTION [None]
  - LYMPHADENOPATHY [None]
